FAERS Safety Report 21838610 (Version 2)
Quarter: 2023Q1

REPORT INFORMATION
  Report Type: Other
  Country: US (occurrence: None)
  Receive Date: 20230109
  Receipt Date: 20230110
  Transmission Date: 20230417
  Serious: No
  Sender: FDA-Public Use
  Company Number: US-ROCHE-3259042

PATIENT
  Age: 44 Year
  Sex: Female

DRUGS (1)
  1. OCREVUS [Suspect]
     Active Substance: OCRELIZUMAB
     Indication: Multiple sclerosis
     Dosage: PRESCRIBED AS DAY 1 INFUSE 300MG, DAY 15 IN FUSE 300MG AND INFUSE 600 MG EVERY 6 MONTHS.?DOT: 2022-0
     Route: 042
     Dates: start: 20220627

REACTIONS (1)
  - COVID-19 [Not Recovered/Not Resolved]
